FAERS Safety Report 7488682-1 (Version None)
Quarter: 2011Q2

REPORT INFORMATION
  Report Type: 
  Country: None (occurrence: None)
  Receive Date: 20110518
  Receipt Date: 20110509
  Transmission Date: 20111010
  Serious: Yes (Death)
  Sender: FDA-Public Use
  Company Number: B0718600A

PATIENT
  Age: 57 Year
  Sex: Female

DRUGS (6)
  1. LORAZEPAM [Concomitant]
     Indication: DEPRESSION
     Route: 048
  2. UNKNOWN DRUG [Concomitant]
     Route: 065
  3. PAXIL [Suspect]
     Indication: DEPRESSION
     Route: 048
     Dates: start: 20110310, end: 20110319
  4. RESLIN [Concomitant]
     Indication: DEPRESSION
     Route: 048
  5. CLONAZEPAM [Concomitant]
     Indication: DEPRESSION
     Route: 048
  6. MEILAX [Concomitant]
     Indication: DEPRESSION
     Route: 048

REACTIONS (3)
  - DEPRESSED LEVEL OF CONSCIOUSNESS [None]
  - ENCEPHALOPATHY [None]
  - COMA [None]
